FAERS Safety Report 6226965-3 (Version None)
Quarter: 2009Q2

REPORT INFORMATION
  Report Type: 
  Country: None (occurrence: None)
  Receive Date: 20090612
  Receipt Date: 20090522
  Transmission Date: 20091009
  Serious: No
  Sender: FDA-Public Use
  Company Number: US-ABBOTT-09P-163-0575553-00

PATIENT
  Age: 48 Year
  Sex: Female

DRUGS (1)
  1. HUMIRA [Suspect]
     Indication: PUSTULAR PSORIASIS
     Route: 058
     Dates: start: 20090201

REACTIONS (4)
  - ARTHRALGIA [None]
  - ARTHRITIS [None]
  - CARDIOLIPIN ANTIBODY POSITIVE [None]
  - TENDERNESS [None]
